FAERS Safety Report 10187077 (Version 45)
Quarter: 2021Q1

REPORT INFORMATION
  Report Type: Other
  Country: CA (occurrence: CA)
  Receive Date: 20140522
  Receipt Date: 20210303
  Transmission Date: 20210419
  Serious: Yes (Other)
  Sender: FDA-Public Use
  Company Number: CA-ROCHE-1301050

PATIENT
  Age: 73 Year
  Sex: Male
  Weight: 76 kg

DRUGS (16)
  1. AVAMYS [Concomitant]
     Active Substance: FLUTICASONE FUROATE
     Route: 045
  2. FOLIC ACID. [Concomitant]
     Active Substance: FOLIC ACID
  3. RITUXAN [Suspect]
     Active Substance: RITUXIMAB
     Indication: RHEUMATOID ARTHRITIS
     Dosage: RECENT DOSE ON 06/JUL/2015?LAST RITUXIMAB INFUSION 15/FEB/2016?PREVIOUS RITUXAN INFUSION: 12/JUN/201
     Route: 042
     Dates: start: 20131105
  4. METHYLPREDNISOLONE. [Concomitant]
     Active Substance: METHYLPREDNISOLONE
     Route: 042
     Dates: start: 20131105
  5. TYLENOL [Concomitant]
     Active Substance: ACETAMINOPHEN
     Indication: PREMEDICATION
     Route: 048
     Dates: start: 20131105
  6. SOLU?MEDROL [Concomitant]
     Active Substance: METHYLPREDNISOLONE SODIUM SUCCINATE
     Indication: PREMEDICATION
     Route: 042
     Dates: start: 20131105
  7. AZARGA [Concomitant]
     Active Substance: BRINZOLAMIDE\TIMOLOL MALEATE
  8. STATEX (CANADA) [Concomitant]
     Active Substance: MORPHINE SULFATE
     Dates: start: 201408
  9. PLAQUENIL [Suspect]
     Active Substance: HYDROXYCHLOROQUINE SULFATE
     Indication: PRODUCT USED FOR UNKNOWN INDICATION
     Route: 065
  10. METHOTREXATE. [Concomitant]
     Active Substance: METHOTREXATE
     Route: 058
  11. ACEBUTOLOL [Concomitant]
     Active Substance: ACEBUTOLOL
     Dosage: MYLAN
  12. ATORVASTATIN [Concomitant]
     Active Substance: ATORVASTATIN
  13. CLOPIDOGREL [Concomitant]
     Active Substance: CLOPIDOGREL BISULFATE
  14. OXYCODONE [Concomitant]
     Active Substance: OXYCODONE
     Dosage: EVERY EVENING
  15. XALATAN [Concomitant]
     Active Substance: LATANOPROST
  16. DEXILANT [Concomitant]
     Active Substance: DEXLANSOPRAZOLE

REACTIONS (53)
  - Erythema [Recovered/Resolved]
  - Feeling hot [Recovered/Resolved]
  - Vision blurred [Unknown]
  - Tooth infection [Unknown]
  - Infection [Recovered/Resolved]
  - Pain in extremity [Unknown]
  - Pruritus [Recovered/Resolved]
  - Blood pressure fluctuation [Unknown]
  - Sinus congestion [Unknown]
  - Rhinorrhoea [Unknown]
  - Depression [Unknown]
  - Infusion related reaction [Not Recovered/Not Resolved]
  - Chest pain [Recovered/Resolved]
  - Weight decreased [Unknown]
  - Infusion related reaction [Unknown]
  - Hot flush [Recovered/Resolved]
  - Bronchitis [Recovered/Resolved]
  - Heart rate decreased [Unknown]
  - Off label use [Unknown]
  - Ear pain [Unknown]
  - Feeling hot [Unknown]
  - Prostatic disorder [Unknown]
  - Ankle deformity [Not Recovered/Not Resolved]
  - Gastritis [Unknown]
  - Rheumatoid arthritis [Not Recovered/Not Resolved]
  - Arthralgia [Not Recovered/Not Resolved]
  - Cough [Recovered/Resolved]
  - Nasopharyngitis [Unknown]
  - Pharyngitis [Recovered/Resolved]
  - Blood pressure systolic increased [Unknown]
  - Heart rate decreased [Unknown]
  - Ear congestion [Unknown]
  - Erythema [Unknown]
  - Headache [Not Recovered/Not Resolved]
  - Labyrinthitis [Unknown]
  - Fatigue [Not Recovered/Not Resolved]
  - Neuralgia [Unknown]
  - Blood pressure increased [Unknown]
  - Rash erythematous [Recovered/Resolved]
  - Back pain [Recovered/Resolved]
  - Intentional product use issue [Unknown]
  - Scar [Recovering/Resolving]
  - Trabeculoplasty [Unknown]
  - Thermal burn [Not Recovered/Not Resolved]
  - Device breakage [Recovered/Resolved]
  - Throat clearing [Unknown]
  - Musculoskeletal chest pain [Recovered/Resolved]
  - Throat tightness [Recovering/Resolving]
  - Dry throat [Recovering/Resolving]
  - Rash [Not Recovered/Not Resolved]
  - Oxygen saturation decreased [Unknown]
  - Migraine [Not Recovered/Not Resolved]
  - Tooth fracture [Not Recovered/Not Resolved]

NARRATIVE: CASE EVENT DATE: 20131105
